FAERS Safety Report 5906281-7 (Version None)
Quarter: 2008Q4

REPORT INFORMATION
  Report Type: 
  Country: None (occurrence: None)
  Receive Date: 20081002
  Receipt Date: 20080924
  Transmission Date: 20090506
  Serious: Yes (Other)
  Sender: FDA-Public Use
  Company Number: CL-PFIZER INC-2008081137

PATIENT
  Age: 42 Year
  Sex: Female

DRUGS (2)
  1. AZULFIDINE EN-TABS [Suspect]
     Indication: IRRITABLE BOWEL SYNDROME
     Route: 048
  2. ALL OTHER THERAPEUTIC PRODUCTS [Concomitant]

REACTIONS (5)
  - ABDOMINAL PAIN [None]
  - CARDIAC DISORDER [None]
  - CHEST PAIN [None]
  - UTERINE PAIN [None]
  - VOMITING [None]
